FAERS Safety Report 8026996-7 (Version None)
Quarter: 2012Q1

REPORT INFORMATION
  Report Type: 
  Country: None (occurrence: None)
  Receive Date: 20120106
  Receipt Date: 20120103
  Transmission Date: 20120608
  Serious: Yes (Hospitalization, Other)
  Sender: FDA-Public Use
  Company Number: BE-PFIZER INC-2012000813

PATIENT
  Age: 50 Year
  Sex: Female
  Weight: 47.5 kg

DRUGS (6)
  1. SOMATROPIN [Suspect]
     Indication: GROWTH HORMONE DEFICIENCY
     Dosage: 0.4 MG, 1X/DAY
     Dates: start: 20001108, end: 20100201
  2. LEVOTHYROXINE SODIUM [Concomitant]
     Indication: HYPOTHYROIDISM
     Dosage: UNK
     Route: 048
     Dates: start: 19990315
  3. DESMOPRESSIN [Concomitant]
     Indication: BLOOD ANTIDIURETIC HORMONE DECREASED
     Dosage: UNK
     Dates: start: 19990315
  4. DYDROGESTERONE [Concomitant]
     Indication: HYPOGONADISM
     Dosage: UNK
     Route: 048
     Dates: start: 20000915
  5. HYDROCORTISONE [Concomitant]
     Indication: BLOOD CORTICOTROPHIN ABNORMAL
     Dosage: UNK
     Route: 048
     Dates: start: 19981118
  6. ESTRADIOL [Concomitant]
     Indication: HYPOGONADISM
     Dosage: UNK
     Route: 048
     Dates: start: 20000915

REACTIONS (2)
  - METASTASES TO CENTRAL NERVOUS SYSTEM [None]
  - PITUITARY TUMOUR RECURRENT [None]
